FAERS Safety Report 7526477-0 (Version None)
Quarter: 2011Q2

REPORT INFORMATION
  Report Type: 
  Country: None (occurrence: None)
  Receive Date: 20110606
  Receipt Date: 20110525
  Transmission Date: 20111010
  Serious: Yes (Other)
  Sender: FDA-Public Use
  Company Number: US-UCBSA-034091

PATIENT
  Sex: Female
  Weight: 88.45 kg

DRUGS (7)
  1. CIMZIA [Suspect]
     Indication: RHEUMATOID ARTHRITIS
     Dosage: 2 SHOTS, LAST DOSE WAS ON 28-APR-2011
     Route: 057
     Dates: start: 20110401
  2. SINGULAIR [Concomitant]
     Indication: ASTHMA
     Route: 048
     Dates: start: 20090101
  3. SYNTHROID [Concomitant]
     Indication: THYROID DISORDER
     Route: 048
  4. REGLAN [Concomitant]
     Indication: GASTROOESOPHAGEAL REFLUX DISEASE
     Dosage: AC/HS
     Route: 048
     Dates: start: 20010101
  5. COUMADIN [Concomitant]
     Indication: THROMBOSIS
     Dosage: 4 MG/3 MG ALTERNATING DAYS
     Route: 048
     Dates: start: 20101101
  6. BYSTOLIC [Concomitant]
     Indication: HYPERTENSION
     Route: 048
     Dates: start: 20090101
  7. PREVACID [Concomitant]
     Indication: GASTROOESOPHAGEAL REFLUX DISEASE
     Route: 048
     Dates: start: 20010101

REACTIONS (7)
  - BLOOD GLUCOSE INCREASED [None]
  - SKIN EXFOLIATION [None]
  - CANDIDIASIS [None]
  - FOOD ALLERGY [None]
  - PREGNANCY [None]
  - FATIGUE [None]
  - ERYTHEMA [None]
